FAERS Safety Report 19440804 (Version 2)
Quarter: 2022Q1

REPORT INFORMATION
  Report Type: Spontaneous
  Country: RU (occurrence: None)
  Receive Date: 20210621
  Receipt Date: 20220325
  Transmission Date: 20220423
  Serious: Yes (Other)
  Sender: FDA-Public Use
  Company Number: RU-ROCHE-2846607

PATIENT
  Age: 62 Year
  Sex: Female

DRUGS (2)
  1. ATEZOLIZUMAB [Suspect]
     Active Substance: ATEZOLIZUMAB
     Indication: Product used for unknown indication
     Route: 041
  2. BEVACIZUMAB [Suspect]
     Active Substance: BEVACIZUMAB
     Indication: Product used for unknown indication
     Route: 042

REACTIONS (16)
  - Venous thrombosis limb [Unknown]
  - Dyspnoea [Unknown]
  - Hydrothorax [Unknown]
  - Varices oesophageal [Unknown]
  - Varicose vein [Unknown]
  - Haematemesis [Unknown]
  - Liver abscess [Unknown]
  - Hepatic cirrhosis [Unknown]
  - Portal hypertension [Unknown]
  - Portal vein thrombosis [Unknown]
  - Hepatosplenomegaly [Unknown]
  - Pancreatitis [Unknown]
  - Nasopharyngitis [Unknown]
  - Syphilis [Unknown]
  - Asthenia [Unknown]
  - Oedema peripheral [Unknown]

NARRATIVE: CASE EVENT DATE: 20200829
